FAERS Safety Report 15603213 (Version 1)
Quarter: 2018Q4

REPORT INFORMATION
  Report Type: Spontaneous
  Country: CN (occurrence: CN)
  Receive Date: 20181109
  Receipt Date: 20181109
  Transmission Date: 20190205
  Serious: Yes (Hospitalization)
  Sender: FDA-Public Use
  Company Number: CN-JNJFOC-20181108475

PATIENT
  Age: 55 Year
  Sex: Male
  Weight: 62 kg

DRUGS (1)
  1. SPORANOX [Suspect]
     Active Substance: ITRACONAZOLE
     Indication: FUNGAL INFECTION
     Route: 048
     Dates: start: 20180320, end: 20180330

REACTIONS (4)
  - Dyskinesia [Recovered/Resolved]
  - Hallucination [Recovered/Resolved]
  - Seizure [Recovered/Resolved]
  - Speech disorder [Recovered/Resolved]

NARRATIVE: CASE EVENT DATE: 20180329
